FAERS Safety Report 10576221 (Version 5)
Quarter: 2015Q2

REPORT INFORMATION
  Report Type: Spontaneous
  Country: US (occurrence: US)
  Receive Date: 20141111
  Receipt Date: 20150401
  Transmission Date: 20150821
  Serious: Yes (Hospitalization, Other)
  Sender: FDA-Public Use
  Company Number: US-PFIZER INC-2014308597

PATIENT
  Age: 48 Year
  Sex: Male
  Weight: 86 kg

DRUGS (13)
  1. VIAGRA [Suspect]
     Active Substance: SILDENAFIL CITRATE
     Indication: ERECTILE DYSFUNCTION
     Dosage: 100 MG AN HOUR OR SO BEFORE SEXUAL ACTIVITY
     Dates: start: 2010
  2. LOSARTAN [Concomitant]
     Active Substance: LOSARTAN
     Indication: HYPERTENSION
     Dosage: 100-12.5MG, DAILY
  3. CHANTIX [Suspect]
     Active Substance: VARENICLINE TARTRATE
     Indication: SMOKING CESSATION THERAPY
     Dosage: 1 MG, 2X/DAY (1 MG MORNING AND 1 MG  IN EVENING)
     Route: 048
     Dates: start: 201410, end: 20150227
  4. EFFEXOR XR [Suspect]
     Active Substance: VENLAFAXINE HYDROCHLORIDE
     Indication: BIPOLAR DISORDER
  5. LORAZEPAM. [Concomitant]
     Active Substance: LORAZEPAM
     Indication: SLEEP DISORDER
     Dosage: 1/2 TO 1MG AT NIGHT AS NEEDED
  6. ARIMIDEX [Concomitant]
     Active Substance: ANASTROZOLE
     Indication: BLOOD OESTROGEN DECREASED
     Dosage: 1 MG, EVERY 6 DAYS
  7. CRESTOR [Concomitant]
     Active Substance: ROSUVASTATIN CALCIUM
     Indication: BLOOD CHOLESTEROL INCREASED
     Dosage: 20 MG, DAILY
  8. EFFEXOR XR [Suspect]
     Active Substance: VENLAFAXINE HYDROCHLORIDE
     Indication: SOCIAL PHOBIA
  9. NUVIGIL [Concomitant]
     Active Substance: ARMODAFINIL
     Indication: FATIGUE
     Dosage: 250 MG, 1X/DAY IN MORNING
  10. WARFARIN SODIUM. [Concomitant]
     Active Substance: WARFARIN SODIUM
     Indication: THROMBOSIS PROPHYLAXIS
     Dosage: 6 MG, DAILY
  11. EFFEXOR XR [Suspect]
     Active Substance: VENLAFAXINE HYDROCHLORIDE
     Indication: DEPRESSION
     Dosage: 300 MG, DAILY
     Dates: start: 2010
  12. TESTOSTERONE. [Concomitant]
     Active Substance: TESTOSTERONE
     Indication: BLOOD TESTOSTERONE DECREASED
     Dosage: 100MG/ML, 0.5 ML, EVERY 6 DAYS
  13. BUTALBITAL, CAFFEINE, PARACETAMOL [Concomitant]
     Indication: HEADACHE
     Dosage: BUTALBITAL 50MG/CAFFEINE 40MG/PARACETAMOL 325MG, AS NEEDED

REACTIONS (7)
  - Skin cancer [Not Recovered/Not Resolved]
  - Abnormal dreams [Unknown]
  - Fall [Unknown]
  - Dizziness [Unknown]
  - Arthropathy [Recovering/Resolving]
  - Mood altered [Unknown]
  - Loss of consciousness [Unknown]

NARRATIVE: CASE EVENT DATE: 20141103
